FAERS Safety Report 8256956-2 (Version None)
Quarter: 2012Q1

REPORT INFORMATION
  Report Type: 
  Country: None (occurrence: None)
  Receive Date: 20120330
  Receipt Date: 20120301
  Transmission Date: 20120608
  Serious: Yes (Other)
  Sender: FDA-Public Use
  Company Number: BR-025491

PATIENT
  Age: 85 Year
  Sex: Female
  Weight: 50 kg

DRUGS (3)
  1. (CHLORAMBUCIL) (BATCH#S: 1062104) [Suspect]
     Indication: LEUKOCYTOSIS
     Dosage: 2MG PER DAY
     Route: 048
     Dates: start: 19960101
  2. LEVOTHYROXINE SODIUM [Concomitant]
  3. AMLODIPINE [Concomitant]

REACTIONS (5)
  - PRODUCT QUALITY ISSUE [None]
  - LEUKOCYTOSIS [None]
  - COUGH [None]
  - INFLUENZA [None]
  - DYSPNOEA [None]
